FAERS Safety Report 9100767 (Version 1)
Quarter: 2013Q1

REPORT INFORMATION
  Report Type: Spontaneous
  Country: US (occurrence: None)
  Receive Date: 20130220
  Receipt Date: 20130220
  Transmission Date: 20140127
  Serious: Yes (Other)
  Sender: FDA-Public Use
  Company Number: None

PATIENT
  Age: 35 Year
  Sex: Male
  Weight: 83.92 kg

DRUGS (1)
  1. CYMBALTA [Suspect]
     Indication: MYOFASCIAL PAIN SYNDROME
     Dosage: 60 MG  1X/DAY  GEL PILL
     Dates: start: 201211

REACTIONS (5)
  - Anxiety [None]
  - Disturbance in attention [None]
  - Dizziness [None]
  - Headache [None]
  - Drug withdrawal syndrome [None]
